FAERS Safety Report 17239912 (Version 1)
Quarter: 2020Q1

REPORT INFORMATION
  Report Type: Spontaneous
  Country: FR (occurrence: FR)
  Receive Date: 20200106
  Receipt Date: 20200106
  Transmission Date: 20200409
  Serious: Yes (Death)
  Sender: FDA-Public Use
  Company Number: FR-BAXTER-2019BAX026753

PATIENT
  Sex: Male

DRUGS (16)
  1. VIT E EPHYNAL [Suspect]
     Active Substance: .ALPHA.-TOCOPHEROL ACETATE
     Indication: PARENTERAL NUTRITION
     Route: 051
  2. PHOCYTAN [Suspect]
     Active Substance: .ALPHA.-GLUCOSE-1-PHOSPHATE
     Indication: PARENTERAL NUTRITION
     Route: 051
  3. POTASSIUM CHLORIDE. [Suspect]
     Active Substance: POTASSIUM CHLORIDE
     Indication: PARENTERAL NUTRITION
     Dosage: POTASSIUM CHLORIDE 10% 500ML
     Route: 051
  4. SODIUM CHLORIDE. [Suspect]
     Active Substance: SODIUM CHLORIDE
     Indication: PARENTERAL NUTRITION
     Dosage: SODIUM CHLORIDE 20% 500ML
     Route: 051
  5. NA LACTATE [Suspect]
     Active Substance: SODIUM LACTATE
     Indication: PARENTERAL NUTRITION
     Route: 051
  6. ZINC. [Suspect]
     Active Substance: ZINC
     Indication: PARENTERAL NUTRITION
     Route: 051
  7. SELENIUM [Suspect]
     Active Substance: SELENIUM
     Indication: PARENTERAL NUTRITION
     Route: 051
  8. VIT K1 [Suspect]
     Active Substance: PHYTONADIONE
     Indication: PARENTERAL NUTRITION
     Route: 051
  9. CERNEVIT [Suspect]
     Active Substance: VITAMINS
     Indication: PARENTERAL NUTRITION
     Route: 051
  10. SMOF [Suspect]
     Active Substance: AMINO ACIDS\DEXTROSE\ELECTROLYTES NOS\SOYBEAN OIL
     Indication: PARENTERAL NUTRITION
     Route: 051
  11. MGSO4 [Suspect]
     Active Substance: MAGNESIUM SULFATE
     Indication: PARENTERAL NUTRITION
     Route: 051
  12. GLUCO CA [Suspect]
     Active Substance: CALCIUM GLUCONATE
     Indication: PARENTERAL NUTRITION
     Dosage: GLUCO CA 500ML 10%
     Route: 051
  13. L CARNITINE [Suspect]
     Active Substance: LEVOCARNITINE
     Indication: PARENTERAL NUTRITION
     Route: 051
  14. VINTENE, SOLUTION INJECTABLE POUR PERFUSION [Suspect]
     Active Substance: AMINO ACIDS, SOURCE UNSPECIFIED
     Indication: PARENTERAL NUTRITION
     Route: 051
  15. EAU POUR PREPARATIONS INJECTABLES VIAFLO, SOLVANT POUR PR?PARATION PAR [Suspect]
     Active Substance: WATER
     Indication: PARENTERAL NUTRITION
     Route: 051
  16. GLUCOSE [Suspect]
     Active Substance: DEXTROSE
     Indication: PARENTERAL NUTRITION
     Route: 051

REACTIONS (1)
  - Cardiac failure [Fatal]
